FAERS Safety Report 5800078-4 (Version None)
Quarter: 2008Q3

REPORT INFORMATION
  Report Type: 
  Country: None (occurrence: None)
  Receive Date: 20080701
  Receipt Date: 20080616
  Transmission Date: 20090109
  Serious: Yes (Hospitalization)
  Sender: FDA-Public Use
  Company Number: 2008AL007207

PATIENT
  Age: 80 Year
  Sex: Female
  Weight: 49.8957 kg

DRUGS (1)
  1. DIGOXIN [Suspect]
     Dosage: 0.125MG DAILY PO
     Route: 048

REACTIONS (4)
  - CEREBROVASCULAR ACCIDENT [None]
  - FAECALOMA [None]
  - HYPOTENSION [None]
  - MYOCARDIAL INFARCTION [None]
